FAERS Safety Report 8718345 (Version 2)
Quarter: 2013Q1

REPORT INFORMATION
  Report Type: Spontaneous
  Country: CA (occurrence: CA)
  Receive Date: 20120810
  Receipt Date: 20130315
  Transmission Date: 20140127
  Serious: Yes (Other)
  Sender: FDA-Public Use
  Company Number: CA-ABBOTT-12P-028-0963591-00

PATIENT
  Age: 29 Year
  Sex: Male

DRUGS (3)
  1. BIAXIN [Suspect]
     Indication: INFECTION PROPHYLAXIS
     Dosage: 1.0
     Route: 048
     Dates: start: 20110530
  2. ADVAIR [Interacting]
     Indication: PULMONARY FUNCTION TEST DECREASED
     Dosage: 2 PUFFS TWICE PER DAY
     Route: 055
     Dates: start: 20110530, end: 20110724
  3. PREDNISONE [Concomitant]
     Indication: PRODUCT USED FOR UNKNOWN INDICATION
     Route: 065

REACTIONS (4)
  - Drug interaction [Unknown]
  - Obstructive airways disorder [Recovering/Resolving]
  - Chest pain [Recovered/Resolved]
  - Dizziness [Recovering/Resolving]
